FAERS Safety Report 7842170-9 (Version None)
Quarter: 2011Q4

REPORT INFORMATION
  Report Type: 
  Country: None (occurrence: None)
  Receive Date: 20111025
  Receipt Date: 20111019
  Transmission Date: 20120403
  Serious: Yes (Hospitalization)
  Sender: FDA-Public Use
  Company Number: DE-UCBSA-038965

PATIENT
  Sex: Female

DRUGS (3)
  1. KEPPRA [Suspect]
     Dosage: 100 MG/ML IN LIQUID FORM IN MORNINGS AND EVENINGS
     Route: 048
     Dates: start: 20110101, end: 20110101
  2. KEPPRA [Suspect]
     Dosage: DOWN TITRATED
     Dates: start: 20110101
  3. LUMINALETTEN [Concomitant]
     Dosage: 1/4 TABLET IN THE MORNINGS AND 1/4 TABLET IN THE EVENINGS

REACTIONS (2)
  - FLUID IMBALANCE [None]
  - EATING DISORDER SYMPTOM [None]
